FAERS Safety Report 17083338 (Version 1)
Quarter: 2019Q4

REPORT INFORMATION
  Report Type: Spontaneous
  Country: US (occurrence: US)
  Receive Date: 20191127
  Receipt Date: 20191127
  Transmission Date: 20200122
  Serious: No
  Sender: FDA-Public Use
  Company Number: US-PERRIGO-19US010765

PATIENT
  Sex: Female

DRUGS (1)
  1. ESOMEPRAZOLE MAGNESIUM. [Suspect]
     Active Substance: ESOMEPRAZOLE MAGNESIUM
     Indication: EXPOSURE TO UNSPECIFIED AGENT
     Dosage: UNK, UNK
     Route: 048
     Dates: start: 201908, end: 201908

REACTIONS (1)
  - Exposure to unspecified agent [Not Recovered/Not Resolved]

NARRATIVE: CASE EVENT DATE: 201908
